FAERS Safety Report 18557098 (Version 2)
Quarter: 2020Q4

REPORT INFORMATION
  Report Type: Spontaneous
  Country: NL (occurrence: NL)
  Receive Date: 20201129
  Receipt Date: 20201210
  Transmission Date: 20210114
  Serious: Yes (Other)
  Sender: FDA-Public Use
  Company Number: NL-NOVOPROD-769485

PATIENT
  Age: 63 Year
  Sex: Male
  Weight: 94.3 kg

DRUGS (5)
  1. OZEMPIC [Suspect]
     Active Substance: SEMAGLUTIDE
     Indication: TYPE 2 DIABETES MELLITUS
     Dosage: 0.25 MG, QW
     Route: 058
     Dates: start: 201912, end: 202001
  2. INSULIN [Concomitant]
     Active Substance: INSULIN NOS
     Indication: TYPE 2 DIABETES MELLITUS
     Dosage: UNK
     Route: 065
  3. ABASAGLAR [Concomitant]
     Active Substance: INSULIN GLARGINE
     Indication: TYPE 2 DIABETES MELLITUS
     Dosage: 50 IU, QD
     Route: 058
  4. OZEMPIC [Suspect]
     Active Substance: SEMAGLUTIDE
     Dosage: 0.5 MG, QW
     Route: 058
     Dates: start: 202001, end: 202005
  5. OZEMPIC [Suspect]
     Active Substance: SEMAGLUTIDE
     Dosage: 1 MG, QW
     Route: 058
     Dates: start: 202005

REACTIONS (1)
  - Retinopathy [Not Recovered/Not Resolved]

NARRATIVE: CASE EVENT DATE: 20201111
